FAERS Safety Report 14930551 (Version 1)
Quarter: 2018Q2

REPORT INFORMATION
  Report Type: Spontaneous
  Country: SG (occurrence: SG)
  Receive Date: 20180523
  Receipt Date: 20180523
  Transmission Date: 20180711
  Serious: Yes (Other)
  Sender: FDA-Public Use
  Company Number: SG-TAKEDA-2018TJP013599

PATIENT
  Age: 79 Year
  Sex: Male

DRUGS (3)
  1. TINIDAZOLE. [Concomitant]
     Active Substance: TINIDAZOLE
     Dosage: 1 G, QD
     Route: 048
     Dates: start: 19970823, end: 19970823
  2. KLACID                             /00984601/ [Concomitant]
     Active Substance: CLARITHROMYCIN
     Dosage: 500 MG, QD
     Route: 048
     Dates: start: 19970823, end: 19970823
  3. PREVACID [Suspect]
     Active Substance: LANSOPRAZOLE
     Indication: HELICOBACTER GASTRITIS
     Dosage: 30 MG, QD
     Route: 065
     Dates: start: 19970823, end: 19970823

REACTIONS (2)
  - Vision blurred [Not Recovered/Not Resolved]
  - Eye oedema [Not Recovered/Not Resolved]

NARRATIVE: CASE EVENT DATE: 19970906
